FAERS Safety Report 17799903 (Version 4)
Quarter: 2022Q4

REPORT INFORMATION
  Report Type: Spontaneous
  Country: JP (occurrence: JP)
  Receive Date: 20200518
  Receipt Date: 20221118
  Transmission Date: 20230112
  Serious: Yes (Other)
  Sender: FDA-Public Use
  Company Number: JP-ELI_LILLY_AND_COMPANY-JP202005005733

PATIENT
  Sex: Male
  Weight: 8.3 kg

DRUGS (11)
  1. ADCIRCA [Suspect]
     Active Substance: TADALAFIL
     Indication: Pulmonary arterial hypertension
     Dosage: 8 MG, DAILY
     Route: 048
  2. OPSUMIT [Suspect]
     Active Substance: MACITENTAN
     Indication: Pulmonary arterial hypertension
     Dosage: 2 MG, DAILY
     Route: 065
  3. UPTRAVI [Suspect]
     Active Substance: SELEXIPAG
     Indication: Pulmonary arterial hypertension
     Dosage: 0.04 MG, DAILY
     Route: 048
     Dates: start: 20190710, end: 20190712
  4. UPTRAVI [Suspect]
     Active Substance: SELEXIPAG
     Dosage: 0.06 MG, DAILY
     Route: 048
     Dates: start: 20190713, end: 20190715
  5. UPTRAVI [Suspect]
     Active Substance: SELEXIPAG
     Dosage: 0.08 MG, DAILY
     Route: 048
     Dates: start: 20190716, end: 20190718
  6. UPTRAVI [Suspect]
     Active Substance: SELEXIPAG
     Dosage: 0.1 MG, DAILY
     Route: 048
     Dates: start: 20190719, end: 20190722
  7. UPTRAVI [Suspect]
     Active Substance: SELEXIPAG
     Dosage: 0.06 MG, BID
     Route: 048
     Dates: start: 20190723, end: 20190912
  8. UPTRAVI [Suspect]
     Active Substance: SELEXIPAG
     Dosage: 0.05 MG, BID
     Route: 048
     Dates: start: 20190913, end: 20191225
  9. AMLODIPINE [Concomitant]
     Active Substance: AMLODIPINE BESYLATE
     Indication: Product used for unknown indication
     Dosage: 1.5 MG, DAILY
     Route: 065
  10. FUROSEMIDE [Concomitant]
     Active Substance: FUROSEMIDE
     Indication: Product used for unknown indication
     Dosage: 21 MG, DAILY
     Route: 065
  11. SPIRONOLACTONE [Concomitant]
     Active Substance: SPIRONOLACTONE
     Indication: Product used for unknown indication
     Dosage: 21 MG, DAILY
     Route: 065

REACTIONS (2)
  - Pulmonary congestion [Recovered/Resolved]
  - Off label use [Unknown]

NARRATIVE: CASE EVENT DATE: 20190912
